FAERS Safety Report 4386848-0 (Version None)
Quarter: 2004Q2

REPORT INFORMATION
  Report Type: 
  Country: None (occurrence: None)
  Receive Date: 20040623
  Receipt Date: 20040608
  Transmission Date: 20050107
  Serious: Yes (Death)
  Sender: FDA-Public Use
  Company Number: USA040669680

PATIENT
  Age: 49 Year
  Sex: Female

DRUGS (7)
  1. PROZAC [Suspect]
  2. OXAZEPAM [Concomitant]
  3. ACETAMINOPHEN [Concomitant]
  4. TEMAZEPAM [Concomitant]
  5. OXYCODONE [Concomitant]
  6. CODEINE [Concomitant]
  7. MIRTAZAPINE [Concomitant]

REACTIONS (3)
  - ACCIDENT [None]
  - OVERDOSE [None]
  - OVERWEIGHT [None]
